FAERS Safety Report 7904890-7 (Version None)
Quarter: 2011Q4

REPORT INFORMATION
  Report Type: 
  Country: None (occurrence: None)
  Receive Date: 20111109
  Receipt Date: 20111031
  Transmission Date: 20120403
  Serious: Yes (Other)
  Sender: FDA-Public Use
  Company Number: PHHY2011IT90238

PATIENT
  Sex: Male

DRUGS (1)
  1. DICLOFENAC SODIUM [Suspect]
     Dosage: TOTAL DOSE OF 75 MG
     Route: 030
     Dates: start: 20110718, end: 20110718

REACTIONS (2)
  - DYSPNOEA [None]
  - THROAT TIGHTNESS [None]
